FAERS Safety Report 5363292-0 (Version None)
Quarter: 2007Q2

REPORT INFORMATION
  Report Type: 
  Country: None (occurrence: None)
  Receive Date: 20070620
  Receipt Date: 20070613
  Transmission Date: 20071010
  Serious: Yes (Death)
  Sender: FDA-Public Use
  Company Number: AE-JNJFOC-20070504491

PATIENT
  Sex: Female

DRUGS (1)
  1. CAELYX [Suspect]
     Indication: CHEMOTHERAPY
     Dosage: 2 HOURS
     Route: 042
     Dates: start: 20070401

REACTIONS (1)
  - THROMBOCYTOPENIA [None]
